FAERS Safety Report 19240933 (Version 1)
Quarter: 2021Q2

REPORT INFORMATION
  Report Type: Spontaneous
  Country: US (occurrence: US)
  Receive Date: 20210511
  Receipt Date: 20210511
  Transmission Date: 20210717
  Serious: Yes (Death, Other)
  Sender: FDA-Public Use
  Company Number: US-SA-2021SA156116

PATIENT
  Age: 63 Year
  Sex: Male

DRUGS (2)
  1. ZANTAC [Suspect]
     Active Substance: RANITIDINE HYDROCHLORIDE
     Indication: DYSPEPSIA
     Dosage: 300 MG
     Dates: end: 201312
  2. ZANTAC [Suspect]
     Active Substance: RANITIDINE HYDROCHLORIDE
     Indication: GASTROOESOPHAGEAL REFLUX DISEASE
     Dosage: 150 MG, QD
     Dates: start: 200005

REACTIONS (5)
  - Lung neoplasm malignant [Fatal]
  - Gastrointestinal carcinoma [Fatal]
  - Small intestine carcinoma [Fatal]
  - Oesophageal carcinoma [Unknown]
  - Gastric cancer [Fatal]

NARRATIVE: CASE EVENT DATE: 20130101
